FAERS Safety Report 4330362-5 (Version None)
Quarter: 2004Q1

REPORT INFORMATION
  Report Type: 
  Country: None (occurrence: None)
  Receive Date: 20040329
  Receipt Date: 20040315
  Transmission Date: 20041129
  Serious: Yes (Hospitalization)
  Sender: FDA-Public Use
  Company Number: BR-JNJFOC-20040304782

PATIENT
  Age: 49 Year
  Sex: Female
  Weight: 70 kg

DRUGS (3)
  1. ACETAMINOPHEN AND CODEINE PHOSPHATE [Suspect]
     Indication: PAIN
     Dosage: 30 MG, 4 IN 1 DAY
     Dates: start: 20040212
  2. TYLENOL (DROPS) PARACETAMOL [Concomitant]
  3. CAPTOPRIL [Concomitant]

REACTIONS (6)
  - BONE NEOPLASM MALIGNANT [None]
  - HALLUCINATION [None]
  - PAIN [None]
  - POLYURIA [None]
  - STUPOR [None]
  - URINARY INCONTINENCE [None]
